FAERS Safety Report 6678778-6 (Version None)
Quarter: 2010Q2

REPORT INFORMATION
  Report Type: 
  Country: None (occurrence: None)
  Receive Date: 20100413
  Receipt Date: 20100406
  Transmission Date: 20101027
  Serious: Yes (Hospitalization)
  Sender: FDA-Public Use
  Company Number: DE-ASTRAZENECA-2010SE12208

PATIENT
  Age: 15836 Day
  Sex: Female
  Weight: 85 kg

DRUGS (7)
  1. ARIMIDEX [Suspect]
     Indication: ADJUVANT THERAPY
     Route: 048
     Dates: start: 20011105, end: 20050610
  2. ZOLADEX [Suspect]
     Indication: ADJUVANT THERAPY
     Route: 058
     Dates: start: 20011105, end: 20041210
  3. VITAMIN D [Concomitant]
  4. CALCIUM [Concomitant]
  5. LEVOTHYROXINE SODIUM [Concomitant]
  6. PAROXAT [Concomitant]
  7. HORMONES AND RELATED AGENTS [Concomitant]

REACTIONS (3)
  - HEPATIC STEATOSIS [None]
  - HYPERTENSION [None]
  - THYROID NEOPLASM [None]
